FAERS Safety Report 22020462 (Version 2)
Quarter: 2023Q1

REPORT INFORMATION
  Report Type: Spontaneous
  Country: US (occurrence: US)
  Receive Date: 20230222
  Receipt Date: 20230320
  Transmission Date: 20230418
  Serious: No
  Sender: FDA-Public Use
  Company Number: US-SA-2023SA057240

PATIENT
  Age: 3 Year
  Sex: Male

DRUGS (1)
  1. LUMIZYME [Suspect]
     Active Substance: ALGLUCOSIDASE ALFA
     Indication: Glycogen storage disease type II
     Dosage: 600 MG, QW
     Route: 042

REACTIONS (3)
  - Infection [Unknown]
  - Pyrexia [Unknown]
  - Inappropriate schedule of product administration [Unknown]
